FAERS Safety Report 7304444-X (Version None)
Quarter: 2011Q1

REPORT INFORMATION
  Report Type: 
  Country: None (occurrence: None)
  Receive Date: 20110221
  Receipt Date: 20110211
  Transmission Date: 20110831
  Serious: Yes (Other)
  Sender: FDA-Public Use
  Company Number: US-ASTRAZENECA-2010SE20728

PATIENT
  Age: 65 Year
  Sex: Female

DRUGS (3)
  1. CRESTOR [Suspect]
     Route: 048
  2. SEROQUEL [Suspect]
     Route: 048
  3. SEROQUEL [Suspect]
     Route: 048

REACTIONS (9)
  - INSOMNIA [None]
  - SUICIDAL IDEATION [None]
  - MALAISE [None]
  - BEDRIDDEN [None]
  - BIPOLAR DISORDER [None]
  - SOCIAL FEAR [None]
  - HYPERCHOLESTEROLAEMIA [None]
  - DRUG DOSE OMISSION [None]
  - DRUG INEFFECTIVE [None]
